FAERS Safety Report 18867818 (Version 1)
Quarter: 2021Q1

REPORT INFORMATION
  Report Type: Spontaneous
  Country: US (occurrence: US)
  Receive Date: 20210209
  Receipt Date: 20210209
  Transmission Date: 20210420
  Serious: Yes (Other)
  Sender: FDA-Public Use
  Company Number: US-GLAXOSMITHKLINE-US2021GSK018530

PATIENT
  Sex: Male

DRUGS (6)
  1. RANITIDINE. [Suspect]
     Active Substance: RANITIDINE
     Dosage: UNKNOWN AT THIS TIME, QD
     Route: 065
     Dates: start: 198305, end: 199305
  2. RANITIDINE. [Suspect]
     Active Substance: RANITIDINE
     Dosage: UNKNOWN AT THIS TIME, QD
     Route: 065
     Dates: start: 198305, end: 199305
  3. RANITIDINE CAPSULE [Suspect]
     Active Substance: RANITIDINE
     Dosage: UNKNOWN AT THIS TIME, QD
     Route: 065
     Dates: start: 198305, end: 199305
  4. ZANTAC [Suspect]
     Active Substance: RANITIDINE HYDROCHLORIDE
     Dosage: UNKNOWN AT THIS TIME, QD
     Route: 065
     Dates: start: 198305, end: 199305
  5. RANITIDINE. [Suspect]
     Active Substance: RANITIDINE
     Dosage: UNKNOWN AT THIS TIME, QD
     Route: 065
     Dates: start: 198305, end: 199305
  6. ZANTAC [Suspect]
     Active Substance: RANITIDINE HYDROCHLORIDE
     Dosage: UNKNOWN AT THIS TIME, QD
     Route: 065
     Dates: start: 198305, end: 199305

REACTIONS (2)
  - Prostate cancer [Unknown]
  - Non-Hodgkin^s lymphoma [Unknown]
